FAERS Safety Report 8946874 (Version 1)
Quarter: 2012Q4

REPORT INFORMATION
  Report Type: 
  Country: US (occurrence: US)
  Receive Date: 20121205
  Receipt Date: 20121205
  Transmission Date: 20130627
  Serious: No
  Sender: FDA-Public Use
  Company Number: US-TEVA-373326USA

PATIENT
  Sex: Male
  Weight: 47.67 kg

DRUGS (2)
  1. PROAIR HFA [Suspect]
     Indication: ASTHMA EXERCISE INDUCED
     Dosage: PRN
     Route: 055
     Dates: start: 201203
  2. LEVSIN [Concomitant]
     Indication: IRRITABLE BOWEL SYNDROME
     Dosage: .125 Milligram Daily;
     Route: 048

REACTIONS (3)
  - Nausea [Not Recovered/Not Resolved]
  - Headache [Not Recovered/Not Resolved]
  - Oropharyngeal pain [Not Recovered/Not Resolved]
